FAERS Safety Report 14375046 (Version 2)
Quarter: 2018Q4

REPORT INFORMATION
  Report Type: Spontaneous
  Country: US (occurrence: US)
  Receive Date: 20180111
  Receipt Date: 20181023
  Transmission Date: 20190204
  Serious: No
  Sender: FDA-Public Use
  Company Number: US-PFIZER INC-2018012019

PATIENT
  Age: 64 Year
  Sex: Female

DRUGS (1)
  1. METHOTREXATE SODIUM. [Suspect]
     Active Substance: METHOTREXATE SODIUM
     Dosage: 0.4 ML, WEEKLY (ONCE A WEEK)
     Route: 058

REACTIONS (8)
  - Abdominal discomfort [Unknown]
  - Musculoskeletal stiffness [Unknown]
  - Diarrhoea [Unknown]
  - Inflammatory marker increased [Unknown]
  - Furuncle [Unknown]
  - Synovitis [Unknown]
  - Drug effect incomplete [Unknown]
  - Drug intolerance [Unknown]
